FAERS Safety Report 14169479 (Version 4)
Quarter: 2017Q4

REPORT INFORMATION
  Report Type: Spontaneous
  Country: US (occurrence: US)
  Receive Date: 20171107
  Receipt Date: 20171229
  Transmission Date: 20180321
  Serious: Yes (Death, Life-Threatening, Hospitalization, Other)
  Sender: FDA-Public Use
  Company Number: US-INCYTE CORPORATION-2017IN009389

PATIENT

DRUGS (20)
  1. JAKAFI [Suspect]
     Active Substance: RUXOLITINIB
     Indication: MYELOFIBROSIS
     Dosage: 5 MG, QD
     Dates: start: 20160711, end: 20170727
  2. LEVAQUIN [Suspect]
     Active Substance: LEVOFLOXACIN
     Indication: URINARY TRACT INFECTION
  3. CIPROFLOXACIN. [Concomitant]
     Active Substance: CIPROFLOXACIN
     Indication: PRODUCT USED FOR UNKNOWN INDICATION
  4. PROBIOTIC                          /06395501/ [Concomitant]
     Active Substance: BIFIDOBACTERIUM ANIMALIS LACTIS
     Indication: PRODUCT USED FOR UNKNOWN INDICATION
     Dosage: ONE CAP TWICE DAILY WITH BREAKFAST AND DINNER
     Route: 048
  5. VITAMIN D3 [Concomitant]
     Active Substance: CHOLECALCIFEROL
     Indication: PRODUCT USED FOR UNKNOWN INDICATION
  6. ESCITALOPRAM [Concomitant]
     Active Substance: ESCITALOPRAM OXALATE
     Indication: PRODUCT USED FOR UNKNOWN INDICATION
     Dosage: 10 MG, 1 AND 1/2 TABL DAILY
     Route: 048
  7. LEVOTHYROXINE. [Concomitant]
     Active Substance: LEVOTHYROXINE
     Indication: PRODUCT USED FOR UNKNOWN INDICATION
     Dosage: 88 MCG DAILY
     Route: 048
  8. NEUPOGEN [Concomitant]
     Active Substance: FILGRASTIM
     Indication: PRODUCT USED FOR UNKNOWN INDICATION
  9. HYDROCODONE [Concomitant]
     Active Substance: HYDROCODONE
     Indication: PAIN
     Dosage: ONE TAB EVERY 4 HRS AS NEEDED FOR PAIN
     Route: 048
  10. WARFARIN [Suspect]
     Active Substance: WARFARIN
     Indication: THROMBOSIS PROPHYLAXIS
     Dosage: 1 MG/5 MG TABLETS AS DIRECTED
  11. DICLOFENAC SODIUM. [Concomitant]
     Active Substance: DICLOFENAC SODIUM
     Indication: PRODUCT USED FOR UNKNOWN INDICATION
     Dosage: APPLY TWICE DAILY TO KNEES
     Route: 061
  12. AMOXICILLIN AND CLAVULA. POTASSIUM /02043401/ [Concomitant]
     Active Substance: AMOXICILLIN\CLAVULANATE POTASSIUM
     Indication: URINARY TRACT INFECTION
     Dosage: ONE TAB BID
     Route: 048
  13. JAKAFI [Suspect]
     Active Substance: RUXOLITINIB
     Dosage: 5 MG, BID
     Route: 048
     Dates: start: 20170728
  14. ONDANSETRON [Concomitant]
     Active Substance: ONDANSETRON
     Indication: PRODUCT USED FOR UNKNOWN INDICATION
  15. TYLENOL EXTRA STRENGTH [Concomitant]
     Active Substance: ACETAMINOPHEN
     Indication: PRODUCT USED FOR UNKNOWN INDICATION
  16. JAKAFI [Suspect]
     Active Substance: RUXOLITINIB
     Dosage: 5 MG, BID
     Route: 048
     Dates: start: 201610
  17. NITROFURANTOIN MACROCRYSTALS [Concomitant]
     Active Substance: NITROFURANTOIN
     Indication: PRODUCT USED FOR UNKNOWN INDICATION
     Dosage: 100 MG EVERY 6 HOURS X7DAYS
     Route: 048
  18. VITAMIN D                          /00107901/ [Concomitant]
     Active Substance: ERGOCALCIFEROL
     Indication: PRODUCT USED FOR UNKNOWN INDICATION
     Dosage: 1000 UNIT TAB DAILY
     Route: 048
  19. JADENU [Suspect]
     Active Substance: DEFERASIROX
     Indication: IRON BINDING CAPACITY TOTAL ABNORMAL
     Dosage: 360 MG TABLETS, 3 TABS ONCE DAILY
     Route: 048
  20. VITAMIN B12 [Concomitant]
     Active Substance: CYANOCOBALAMIN
     Indication: PRODUCT USED FOR UNKNOWN INDICATION
     Dosage: 1000 MCG EXTEND RELEASE QD
     Route: 048

REACTIONS (41)
  - Splenic infarction [Unknown]
  - Hydroureter [Unknown]
  - Anaemia [Unknown]
  - Pyuria [Unknown]
  - Nephrolithiasis [Not Recovered/Not Resolved]
  - Asthenia [Unknown]
  - Terminal state [Not Recovered/Not Resolved]
  - Calculus bladder [Not Recovered/Not Resolved]
  - Pyrexia [Unknown]
  - Leukocytosis [Unknown]
  - Blood phosphorus increased [Not Recovered/Not Resolved]
  - Splenomegaly [Unknown]
  - Contusion [Recovering/Resolving]
  - Haemoglobin decreased [Not Recovered/Not Resolved]
  - Haemorrhage [Not Recovered/Not Resolved]
  - Head injury [Not Recovered/Not Resolved]
  - Fall [Recovering/Resolving]
  - Thrombocytopenia [Unknown]
  - Haematoma [Recovering/Resolving]
  - Platelet count decreased [Not Recovered/Not Resolved]
  - Myelofibrosis [Fatal]
  - Cerebral haemorrhage [Recovering/Resolving]
  - Hypovolaemia [Unknown]
  - Haematuria [Unknown]
  - Cystitis [Not Recovered/Not Resolved]
  - Dehydration [Not Recovered/Not Resolved]
  - Gait disturbance [Unknown]
  - Blood creatinine increased [Not Recovered/Not Resolved]
  - International normalised ratio increased [Unknown]
  - Haematocrit decreased [Unknown]
  - Acute kidney injury [Fatal]
  - Loss of consciousness [Not Recovered/Not Resolved]
  - Tachycardia [Unknown]
  - Coagulopathy [Recovering/Resolving]
  - White blood cell count increased [Not Recovered/Not Resolved]
  - Red blood cell count decreased [Unknown]
  - Cardiac arrest [Fatal]
  - Sepsis [Recovering/Resolving]
  - Hypokalaemia [Recovered/Resolved]
  - Weight decreased [Unknown]
  - Blood uric acid increased [Not Recovered/Not Resolved]

NARRATIVE: CASE EVENT DATE: 20170623
